FAERS Safety Report 8005603-3 (Version None)
Quarter: 2011Q4

REPORT INFORMATION
  Report Type: 
  Country: None (occurrence: None)
  Receive Date: 20111223
  Receipt Date: 20111219
  Transmission Date: 20120403
  Serious: Yes (Other)
  Sender: FDA-Public Use
  Company Number: AU-PFIZER INC-2011307888

PATIENT
  Sex: Female

DRUGS (2)
  1. SILDENAFIL CITRATE [Suspect]
     Indication: PULMONARY HYPERTENSION
     Dosage: 0.3MG/KG/DOSE 8 HOURLY
     Route: 042
  2. SILDENAFIL CITRATE [Suspect]
     Indication: BRONCHOPULMONARY DYSPLASIA

REACTIONS (1)
  - CONDITION AGGRAVATED [None]
